FAERS Safety Report 7991280-4 (Version None)
Quarter: 2011Q4

REPORT INFORMATION
  Report Type: 
  Country: None (occurrence: None)
  Receive Date: 20111219
  Receipt Date: 20111214
  Transmission Date: 20120403
  Serious: Yes (Hospitalization, Other)
  Sender: FDA-Public Use
  Company Number: US-MERCK-1110USA03837

PATIENT
  Age: 70 Year
  Sex: Female

DRUGS (2)
  1. FOSAMAX [Suspect]
     Indication: OSTEOPOROSIS
     Route: 048
     Dates: start: 20030101, end: 20091001
  2. FOSAMAX [Suspect]
     Route: 048
     Dates: start: 20091001, end: 20100801

REACTIONS (11)
  - VITAMIN D DEFICIENCY [None]
  - BLOOD CALCIUM DECREASED [None]
  - HYPERTENSION [None]
  - DIVERTICULITIS [None]
  - FEMUR FRACTURE [None]
  - ANGIOPATHY [None]
  - RIB FRACTURE [None]
  - GASTROINTESTINAL DISORDER [None]
  - CALCIUM DEFICIENCY [None]
  - BREAST CANCER [None]
  - COLON CANCER [None]
